FAERS Safety Report 5590181-9 (Version None)
Quarter: 2008Q1

REPORT INFORMATION
  Report Type: 
  Country: None (occurrence: None)
  Receive Date: 20080114
  Receipt Date: 20080107
  Transmission Date: 20080703
  Serious: Yes (Other)
  Sender: FDA-Public Use
  Company Number: AT-ASTRAZENECA-2008AC00058

PATIENT
  Sex: Male
  Weight: 3 kg

DRUGS (3)
  1. QUETIAPINE [Suspect]
     Dosage: MOTHER RECEIVED 300MG/DAY DURING PREGNANCY
     Route: 064
  2. VENLAFAXINE HCL [Suspect]
     Dosage: MOTHER RECEIVED 75 MG/DAY DURING PREGNANCY
     Route: 064
  3. TRAZODONE HCL [Suspect]
     Dosage: MOTHER RECEIVED 150 MG/DAY DURING PREGNANCY
     Route: 064

REACTIONS (1)
  - FEELING JITTERY [None]
